FAERS Safety Report 8623009 (Version 4)
Quarter: 2013Q4

REPORT INFORMATION
  Report Type: Report from Study
  Country: BE (occurrence: BE)
  Receive Date: 20120619
  Receipt Date: 20131008
  Transmission Date: 20140711
  Serious: Yes (Hospitalization)
  Sender: FDA-Public Use
  Company Number: BE-TEVA-341643ISR

PATIENT
  Age: 66 Year
  Sex: Female

DRUGS (43)
  1. FLUOROURACIL [Suspect]
     Indication: METASTATIC GASTRIC CANCER
     Dosage: 5811 MILLIGRAM DAILY; CYCLE 1
     Route: 041
     Dates: start: 20120305, end: 20120310
  2. FLUOROURACIL [Suspect]
     Dosage: 4272 MILLIGRAM DAILY; CYCLE 2
     Route: 041
     Dates: start: 20120326, end: 20120331
  3. CISPLATIN (CDDP) [Suspect]
     Indication: METASTATIC GASTRIC CANCER
     Dosage: 116 MILLIGRAM DAILY; CYCLE 1
     Route: 041
     Dates: start: 20120305, end: 20120305
  4. CISPLATIN (CDDP) [Suspect]
     Dosage: 85 MILLIGRAM DAILY; CYCLE 2
     Route: 041
     Dates: start: 20120326
  5. ATACAND [Concomitant]
     Indication: HYPERTENSION
     Dates: start: 20050525
  6. ATACAND [Concomitant]
     Dates: start: 20120411
  7. ORTHO-GYNEST [Concomitant]
     Indication: OOPHORECTOMY
     Dates: start: 20110307
  8. OLAMINE (PIROCTONE ETHANOLAMINE) [Concomitant]
     Indication: VITAMIN SUPPLEMENTATION
     Dates: start: 20101208
  9. NEUROBION [Concomitant]
     Indication: GASTRECTOMY
     Dates: start: 20100330
  10. BAREXAL [Concomitant]
     Indication: DIARRHOEA
     Dates: start: 20120305
  11. BAREXAL [Concomitant]
     Dates: start: 20120411
  12. SODIUM BICARBONATE [Concomitant]
     Indication: STOMATITIS
     Route: 002
     Dates: start: 20120313
  13. SODIUM BICARBONATE [Concomitant]
     Route: 002
     Dates: start: 20120411
  14. DAFALGAN [Concomitant]
     Indication: PYREXIA
     Dates: start: 20120328
  15. DAFALGAN [Concomitant]
     Dates: start: 20120411
  16. IMODIUM [Concomitant]
     Indication: DIARRHOEA
     Dates: start: 20120312
  17. EMEND [Concomitant]
     Indication: PROPHYLAXIS OF NAUSEA AND VOMITING
     Dates: start: 20120305, end: 20120602
  18. MOTILIUM [Concomitant]
     Indication: NAUSEA
     Dates: start: 20120311
  19. ENTEROL [Concomitant]
     Indication: DIARRHOEA
     Dates: start: 2012
  20. MOVICOL [Concomitant]
     Indication: CONSTIPATION PROPHYLAXIS
     Dates: start: 20120313
  21. LITICAN [Concomitant]
     Indication: NAUSEA
     Dates: start: 20120311
  22. PANTOMED [Concomitant]
     Indication: DYSPEPSIA
     Dates: start: 20120406
  23. PANTOMED [Concomitant]
     Indication: NAUSEA
  24. MS CONTIN [Concomitant]
     Indication: ODYNOPHAGIA
     Dates: start: 20120316
  25. MS DIRECT [Concomitant]
     Indication: ODYNOPHAGIA
     Dates: start: 20120315
  26. PRIMPERAN [Concomitant]
     Indication: NAUSEA
     Dates: start: 20120316
  27. SYNGEL [Concomitant]
     Indication: PROPHYLAXIS
     Dosage: FEEDING TUBE
     Dates: start: 20120314
  28. SYNGEL [Concomitant]
     Dosage: FEEDING TUBE
     Dates: start: 20120315, end: 20120402
  29. SYNGEL [Concomitant]
     Dosage: FEEDING TUBE
     Dates: start: 20120411, end: 20120413
  30. PRESERVISION (OCUVITE LUTEINE) [Concomitant]
     Indication: VITAMIN SUPPLEMENTATION
     Dates: start: 20101001
  31. SOFTENE [Concomitant]
     Indication: CONSTIPATION PROPHYLAXIS
     Dates: start: 20120315
  32. ISOSOURCE ENERGY [Concomitant]
     Indication: DECREASED APPETITE
     Dates: start: 20120327, end: 20120607
  33. EMCONCOR [Concomitant]
     Indication: PROPHYLAXIS
     Dates: start: 20120322, end: 20120328
  34. XYLOCAINE GEL BUCCAL [Concomitant]
     Indication: STOMATITIS
     Route: 002
     Dates: start: 20120402, end: 20120407
  35. POTASSIUM CHLORIDE [Concomitant]
     Indication: HYPOKALAEMIA
     Route: 042
     Dates: start: 20120402, end: 20120405
  36. PARACETAMOL [Concomitant]
     Indication: PROPHYLAXIS
     Dates: start: 20120402, end: 20120407
  37. NEXIUM [Concomitant]
     Indication: ODYNOPHAGIA
     Dates: start: 20120402, end: 20120405
  38. SODIUM CHLORIDE [Concomitant]
     Indication: HYPONATRAEMIA
     Dates: start: 20120402, end: 20120405
  39. FRAXIPARIN [Concomitant]
     Indication: THROMBOSIS PROPHYLAXIS
     Dates: start: 20120405, end: 20120406
  40. FRAXIPARIN [Concomitant]
     Dates: start: 20120412, end: 20120413
  41. ONDANSETRON [Concomitant]
     Indication: PROPHYLAXIS OF NAUSEA AND VOMITING
     Dates: start: 20120305, end: 20120531
  42. DEXAMETHASON [Concomitant]
     Indication: PROPHYLAXIS
     Dates: start: 20120305, end: 20120531
  43. MEDROL [Concomitant]
     Indication: PROPHYLAXIS
     Dates: start: 20120305

REACTIONS (2)
  - Hypokalaemia [Recovered/Resolved]
  - Neutropenia [Recovered/Resolved]
